FAERS Safety Report 25178008 (Version 1)
Quarter: 2025Q2

REPORT INFORMATION
  Report Type: Spontaneous
  Country: US (occurrence: US)
  Receive Date: 20250409
  Receipt Date: 20250409
  Transmission Date: 20250716
  Serious: No
  Sender: KVK-TECH
  Company Number: US-KVK-TECH, INC-20250100015

PATIENT
  Age: 38 Year
  Sex: Female
  Weight: 70.295 kg

DRUGS (2)
  1. PHENTERMINE HYDROCHLORIDE [Suspect]
     Active Substance: PHENTERMINE HYDROCHLORIDE
     Indication: Decreased appetite
     Route: 065
     Dates: start: 20240529
  2. PHENTERMINE HYDROCHLORIDE [Suspect]
     Active Substance: PHENTERMINE HYDROCHLORIDE
     Route: 065
     Dates: start: 202501, end: 202501

REACTIONS (2)
  - Asthenia [Unknown]
  - Inappropriate schedule of product discontinuation [Unknown]

NARRATIVE: CASE EVENT DATE: 20250101
